FAERS Safety Report 21269994 (Version 2)
Quarter: 2022Q3

REPORT INFORMATION
  Report Type: Report from Study
  Country: KR (occurrence: KR)
  Receive Date: 20220830
  Receipt Date: 20220901
  Transmission Date: 20221027
  Serious: Yes (Death, Hospitalization)
  Sender: FDA-Public Use
  Company Number: KR-GLAXOSMITHKLINE-KR2022GSK123432

PATIENT

DRUGS (11)
  1. FLUTICASONE FUROATE\UMECLIDINIUM BROMIDE\VILANTEROL TRIFENATATE [Suspect]
     Active Substance: FLUTICASONE FUROATE\UMECLIDINIUM BROMIDE\VILANTEROL TRIFENATATE
     Indication: Chronic obstructive pulmonary disease
     Dosage: 100 UG, QD
     Route: 055
     Dates: start: 20211124
  2. TWOTINECHOL [Concomitant]
     Indication: Benign prostatic hyperplasia
     Dosage: 25 MG, QD
     Route: 048
     Dates: start: 20220112, end: 20220517
  3. TWOTINECHOL [Concomitant]
     Dosage: 25 MG, BID
     Route: 048
     Dates: start: 20220602
  4. TEPRENONE [Concomitant]
     Active Substance: TEPRENONE
     Indication: Gastrointestinal disorder prophylaxis
     Dosage: 50 MG, BID
     Route: 048
     Dates: start: 20220525, end: 20220712
  5. TEPRENONE [Concomitant]
     Active Substance: TEPRENONE
     Dosage: 50 MG, BID
     Route: 048
     Dates: start: 20220420
  6. FLOSPAN [Concomitant]
     Indication: Benign prostatic hyperplasia
     Dosage: 80 MG, BID
     Route: 048
     Dates: start: 20220525, end: 20220712
  7. FLOSPAN [Concomitant]
     Dosage: 80 MG, BID
     Route: 048
     Dates: start: 20220420, end: 20220430
  8. LEVOFLOXACIN [Concomitant]
     Active Substance: LEVOFLOXACIN
     Indication: Benign prostatic hyperplasia
     Dosage: 500 MG, QD
     Route: 048
     Dates: start: 20220518, end: 20220524
  9. NAFTOPIDIL [Concomitant]
     Active Substance: NAFTOPIDIL
     Indication: Benign prostatic hyperplasia
     Dosage: 75 MG, QD
     Route: 048
     Dates: start: 20220508, end: 20220524
  10. VENTOLIN [Concomitant]
     Active Substance: ALBUTEROL SULFATE
     Indication: Chronic obstructive pulmonary disease
     Dosage: 10 UG, QD (TOTAL 0 DAYS)
     Route: 055
     Dates: start: 20211124
  11. BETMIGA PR TABLET [Concomitant]
     Indication: Hyperplasia
     Dosage: 50 MG, QD
     Route: 048
     Dates: start: 20210906, end: 20220524

REACTIONS (1)
  - Chronic obstructive pulmonary disease [Fatal]

NARRATIVE: CASE EVENT DATE: 20220806
